FAERS Safety Report 19240827 (Version 1)
Quarter: 2021Q2

REPORT INFORMATION
  Report Type: Spontaneous
  Country: CN (occurrence: CN)
  Receive Date: 20210510
  Receipt Date: 20210510
  Transmission Date: 20210717
  Serious: Yes (Hospitalization)
  Sender: FDA-Public Use
  Company Number: CN-PFIZER INC-2021488552

PATIENT
  Age: 31 Year
  Sex: Male
  Weight: 67 kg

DRUGS (10)
  1. CYTARABINE. [Suspect]
     Active Substance: CYTARABINE
     Indication: CHEMOTHERAPY
  2. CYTARABINE. [Suspect]
     Active Substance: CYTARABINE
     Indication: HEPATIC MASS
  3. SODIUM CHLORIDE. [Concomitant]
     Active Substance: SODIUM CHLORIDE
     Indication: CHEMOTHERAPY
  4. CYTARABINE. [Suspect]
     Active Substance: CYTARABINE
     Indication: THALASSAEMIA BETA
  5. SODIUM CHLORIDE. [Concomitant]
     Active Substance: SODIUM CHLORIDE
     Indication: ACUTE PROMYELOCYTIC LEUKAEMIA
     Dosage: 500 ML, 1X/DAY
     Route: 041
     Dates: start: 20210404, end: 20210408
  6. CYTARABINE. [Suspect]
     Active Substance: CYTARABINE
     Indication: PULMONARY SARCOIDOSIS
  7. SODIUM CHLORIDE. [Concomitant]
     Active Substance: SODIUM CHLORIDE
     Indication: HEPATIC MASS
  8. CYTARABINE. [Suspect]
     Active Substance: CYTARABINE
     Indication: ACUTE PROMYELOCYTIC LEUKAEMIA
     Dosage: 0.18 G, 1X/DAY
     Route: 041
     Dates: start: 20210404, end: 20210408
  9. SODIUM CHLORIDE. [Concomitant]
     Active Substance: SODIUM CHLORIDE
     Indication: THALASSAEMIA BETA
  10. SODIUM CHLORIDE. [Concomitant]
     Active Substance: SODIUM CHLORIDE
     Indication: PULMONARY SARCOIDOSIS

REACTIONS (5)
  - Platelet count decreased [Recovering/Resolving]
  - Myelosuppression [Recovering/Resolving]
  - Pancytopenia [Recovering/Resolving]
  - White blood cell count decreased [Recovering/Resolving]
  - Neutrophil count decreased [Recovering/Resolving]

NARRATIVE: CASE EVENT DATE: 20210420
